FAERS Safety Report 7121880-5 (Version None)
Quarter: 2010Q4

REPORT INFORMATION
  Report Type: 
  Country: None (occurrence: None)
  Receive Date: 20101124
  Receipt Date: 20101117
  Transmission Date: 20110411
  Serious: Yes (Hospitalization)
  Sender: FDA-Public Use
  Company Number: NL-ROCHE-743067

PATIENT
  Weight: 73 kg

DRUGS (8)
  1. CAPECITABINE [Suspect]
     Indication: GASTRIC CANCER
     Dosage: LAST DOSE; 01 NOV 2010
     Route: 065
     Dates: start: 20101101
  2. CISPLATIN [Suspect]
     Indication: GASTRIC CANCER
     Dosage: LAST DOSE; 01 NOV 2010
     Route: 065
     Dates: start: 20101101
  3. EPIRUBICIN [Suspect]
     Indication: GASTRIC CANCER
     Dosage: LAST DOSE: 01 NOV 2010
     Route: 065
     Dates: start: 20101101
  4. TAMSULOSINE [Concomitant]
     Route: 048
  5. METOPROLOL [Concomitant]
     Route: 048
  6. PANTOPRAZOLE [Concomitant]
     Route: 048
  7. SYMBICORT [Concomitant]
     Route: 055
  8. FINASTERIDE [Concomitant]

REACTIONS (1)
  - CEREBROVASCULAR ACCIDENT [None]
